FAERS Safety Report 11916770 (Version 1)
Quarter: 2016Q1

REPORT INFORMATION
  Report Type: Spontaneous
  Country: US (occurrence: US)
  Receive Date: 20160114
  Receipt Date: 20160114
  Transmission Date: 20160526
  Serious: No
  Sender: FDA-Public Use
  Company Number: US-ASTRAZENECA-2014SE13486

PATIENT
  Age: 23262 Day
  Sex: Female

DRUGS (46)
  1. NEURONTIN [Suspect]
     Active Substance: GABAPENTIN
     Indication: NEUROPATHY PERIPHERAL
     Route: 048
     Dates: start: 20120509, end: 201208
  2. BENTYL [Concomitant]
     Active Substance: DICYCLOMINE HYDROCHLORIDE
     Indication: PAIN
     Dosage: 20 MG, 1,3X DAY
  3. LISINOPRIL. [Concomitant]
     Active Substance: LISINOPRIL
     Indication: HYPERTENSION
  4. PEPPERMINT. [Concomitant]
     Active Substance: PEPPERMINT
     Indication: VOMITING
     Dosage: AS NEEDED
  5. TYLENOL WITH CODEINE [Concomitant]
     Active Substance: ACETAMINOPHEN\CODEINE PHOSPHATE
     Indication: SCIATICA
     Dosage: 300MG - 30 MG, 1 TABLET EVERY 6 HOURS AS NEEDED
     Dates: start: 20151013
  6. METFORMIN [Concomitant]
     Active Substance: METFORMIN HYDROCHLORIDE
     Indication: DIABETES MELLITUS
  7. PRILOSEC [Suspect]
     Active Substance: OMEPRAZOLE MAGNESIUM
     Route: 048
  8. BENTYL [Concomitant]
     Active Substance: DICYCLOMINE HYDROCHLORIDE
     Indication: VOMITING
     Dosage: 20 MG, 1,3X DAY
  9. TYLENOL WITH CODEINE [Concomitant]
     Active Substance: ACETAMINOPHEN\CODEINE PHOSPHATE
     Indication: BACK DISORDER
     Dosage: 300MG - 30 MG, 1 TABLET EVERY 6 HOURS AS NEEDED
     Dates: start: 20151013
  10. TYLENOL WITH CODEINE [Concomitant]
     Active Substance: ACETAMINOPHEN\CODEINE PHOSPHATE
     Indication: FIBROMYALGIA
     Dosage: 300MG - 30 MG, 1 TABLET EVERY 6 HOURS AS NEEDED
     Dates: start: 20151013
  11. BENEFIBER [Concomitant]
     Active Substance: STARCH, WHEAT
     Indication: IRRITABLE BOWEL SYNDROME
     Dosage: DAILY
     Route: 048
     Dates: start: 20120509
  12. MULTIVITAMIN [Concomitant]
     Active Substance: VITAMINS
     Indication: ROUTINE HEALTH MAINTENANCE
     Dosage: 1 TABLET EVERY DAY WITH FOOD
  13. ASPIRIN. [Suspect]
     Active Substance: ASPIRIN
     Route: 048
  14. LYRICA [Suspect]
     Active Substance: PREGABALIN
     Indication: NEUROPATHY PERIPHERAL
     Dosage: 150 MG IN THE MORNING AND 100 MG AT NIGHT
     Route: 048
  15. LYRICA [Suspect]
     Active Substance: PREGABALIN
     Indication: FIBROMYALGIA
     Dosage: 150 MG IN THE MORNING AND 100 MG AT NIGHT
     Route: 048
  16. LYRICA [Suspect]
     Active Substance: PREGABALIN
     Indication: NEUROPATHY PERIPHERAL
     Route: 048
     Dates: start: 20150625
  17. PEPPERMINT. [Concomitant]
     Active Substance: PEPPERMINT
     Indication: IRRITABLE BOWEL SYNDROME
     Dosage: AS NEEDED
  18. ACETAMINOPHEN. [Concomitant]
     Active Substance: ACETAMINOPHEN
     Dosage: 2 TABLET EVERY 6 HOURS AS NEEDED
     Route: 048
  19. METOPROLOL SUCCINATE. [Suspect]
     Active Substance: METOPROLOL SUCCINATE
     Indication: HEART VALVE INCOMPETENCE
     Route: 048
  20. LYRICA [Suspect]
     Active Substance: PREGABALIN
     Indication: FIBROMYALGIA
     Route: 048
     Dates: start: 20150625
  21. PEPPERMINT. [Concomitant]
     Active Substance: PEPPERMINT
     Indication: DIARRHOEA
     Dosage: AS NEEDED
  22. ANTIVERT [Concomitant]
     Active Substance: MECLIZINE HYDROCHLORIDE
     Indication: DIZZINESS
     Dosage: 12.5 MG, 1- 2 TABLETS 3 TIMES A DAY AS NEEDED
     Route: 048
     Dates: start: 20140327
  23. DILTIAZEM [Concomitant]
     Active Substance: DILTIAZEM
     Route: 048
  24. IBUPROFEN. [Suspect]
     Active Substance: IBUPROFEN
     Dosage: MOTRIN
     Route: 065
  25. BENTYL [Concomitant]
     Active Substance: DICYCLOMINE HYDROCHLORIDE
     Indication: NAUSEA
     Dosage: 20 MG, 1,3X DAY
  26. ZOFRAN [Concomitant]
     Active Substance: ONDANSETRON HYDROCHLORIDE
     Indication: NAUSEA
     Dosage: 4 MG, 1,2 X DAY
  27. TYLENOL WITH CODEINE [Concomitant]
     Active Substance: ACETAMINOPHEN\CODEINE PHOSPHATE
     Indication: MUSCULOSKELETAL DISCOMFORT
     Dosage: 300MG - 30 MG, 1 TABLET EVERY 6 HOURS AS NEEDED
     Dates: start: 20151013
  28. METFORMIN [Concomitant]
     Active Substance: METFORMIN HYDROCHLORIDE
     Indication: DIABETES MELLITUS
     Dosage: 2 TABLETS EVERY DAY WITH THE EVENING MEAL
     Dates: start: 20150826
  29. MULTIVITAMIN [Concomitant]
     Active Substance: VITAMINS
     Indication: ROUTINE HEALTH MAINTENANCE
  30. NEURONTIN [Suspect]
     Active Substance: GABAPENTIN
     Indication: NEUROPATHY PERIPHERAL
     Route: 048
  31. ZOFRAN [Concomitant]
     Active Substance: ONDANSETRON HYDROCHLORIDE
     Indication: VOMITING
     Dosage: 4 MG, 1,2 X DAY
  32. PEPPERMINT. [Concomitant]
     Active Substance: PEPPERMINT
     Indication: NAUSEA
     Dosage: AS NEEDED
  33. ZOFRAN [Concomitant]
     Active Substance: ONDANSETRON HYDROCHLORIDE
     Indication: PAIN
     Dosage: 4 MG, 1,2 X DAY
  34. BENEFIBER [Concomitant]
     Active Substance: STARCH, WHEAT
     Indication: DIARRHOEA
     Dosage: DAILY
     Route: 048
     Dates: start: 20120509
  35. LOMOTIL [Concomitant]
     Active Substance: ATROPINE SULFATE\DIPHENOXYLATE HYDROCHLORIDE
     Indication: DIARRHOEA
     Dosage: 2.5 MG, 1 UP TO 8 TABLETS X DAY
  36. ANTIVERT [Concomitant]
     Active Substance: MECLIZINE HYDROCHLORIDE
     Indication: MUSCULOSKELETAL DISCOMFORT
     Dosage: 12.5 MG, 1- 2 TABLETS 3 TIMES A DAY AS NEEDED
     Route: 048
     Dates: start: 20140327
  37. IMODIUM A-D [Concomitant]
     Active Substance: LOPERAMIDE HYDROCHLORIDE
     Dosage: 2 TABLET AFTER 1ST LOOSE STOOL AND 1 TABLET (2 MG) AFTER EACH NEXT BOWEL MOVEMENT
  38. IBUPROFEN. [Suspect]
     Active Substance: IBUPROFEN
     Route: 065
  39. EFFEXOR XR [Suspect]
     Active Substance: VENLAFAXINE HYDROCHLORIDE
     Dosage: 1 CAPSULE EVERY DAY WITH FOOD
     Route: 048
     Dates: start: 20150212
  40. BENTYL [Concomitant]
     Active Substance: DICYCLOMINE HYDROCHLORIDE
     Indication: IRRITABLE BOWEL SYNDROME
     Dosage: 20 MG, 1,3X DAY
  41. FISH OIL [Concomitant]
     Active Substance: FISH OIL
     Indication: BLOOD CHOLESTEROL ABNORMAL
     Dosage: AS NEEDED
  42. ZOFRAN [Concomitant]
     Active Substance: ONDANSETRON HYDROCHLORIDE
     Indication: IRRITABLE BOWEL SYNDROME
     Dosage: 4 MG, 1,2 X DAY
  43. LOMOTIL [Concomitant]
     Active Substance: ATROPINE SULFATE\DIPHENOXYLATE HYDROCHLORIDE
     Indication: IRRITABLE BOWEL SYNDROME
     Dosage: 2.5 MG, 1 UP TO 8 TABLETS X DAY
  44. FENOFIBRATE. [Concomitant]
     Active Substance: FENOFIBRATE
     Indication: BLOOD CHOLESTEROL ABNORMAL
     Route: 048
     Dates: start: 20150212
  45. QVAR [Concomitant]
     Active Substance: BECLOMETHASONE DIPROPIONATE
     Dosage: 2 PUFFS 2 TIMES EVERY DAY
     Route: 048
     Dates: start: 20150806
  46. NASONEX [Concomitant]
     Active Substance: MOMETASONE FUROATE
     Dosage: 2 SPRAY EVERY DAY IN EACH NOSTRIL AS NEEDED
     Route: 045
     Dates: start: 20150806

REACTIONS (10)
  - Abdominal pain upper [Unknown]
  - Drug hypersensitivity [Unknown]
  - Affect lability [Recovered/Resolved]
  - Panic attack [Unknown]
  - Back pain [Unknown]
  - Haemorrhage [Unknown]
  - Renal pain [Unknown]
  - Off label use [Unknown]
  - Drug intolerance [Unknown]
  - Mood altered [Unknown]

NARRATIVE: CASE EVENT DATE: 20151222
